FAERS Safety Report 8512888-3 (Version None)
Quarter: 2012Q3

REPORT INFORMATION
  Report Type: 
  Country: None (occurrence: None)
  Receive Date: 20120716
  Receipt Date: 20120710
  Transmission Date: 20120928
  Serious: Yes (Other)
  Sender: FDA-Public Use
  Company Number: PHHY2012BR060506

PATIENT
  Sex: Female
  Weight: 50 kg

DRUGS (3)
  1. CLINFAR [Concomitant]
     Indication: BLOOD CHOLESTEROL
     Dosage: 1 DF, THREE TIMES A WEEK
     Route: 048
  2. GINKGO BILOBA [Concomitant]
  3. SULFAMETHOXAZOLE AND TRIMETHOPRIM [Suspect]
     Indication: URINARY TRACT INFECTION
     Dosage: 1 DF, UNK
     Route: 048
     Dates: end: 20120706

REACTIONS (6)
  - TREMOR [None]
  - MYALGIA [None]
  - PYREXIA [None]
  - ASTHENIA [None]
  - URINARY TRACT INFECTION [None]
  - DYSSTASIA [None]
